FAERS Safety Report 4284790-7 (Version None)
Quarter: 2004Q1

REPORT INFORMATION
  Report Type: 
  Country: None (occurrence: None)
  Receive Date: 20040202
  Receipt Date: 20040120
  Transmission Date: 20041129
  Serious: Yes (Death)
  Sender: FDA-Public Use
  Company Number: 03P-087-0233689-00

PATIENT
  Age: 66 Year
  Sex: Male

DRUGS (9)
  1. LIPANTIL (TRICOR) (FENOFIBRATE) (FENOFIBRATE) [Suspect]
     Indication: HYPERLIPIDAEMIA
     Dosage: 150 MG, 1 IN 1 D, ORAL
     Route: 048
     Dates: start: 20000721
  2. CO-DIOVAN [Concomitant]
  3. BOPINDOLOL [Concomitant]
  4. CIMETIDINE HCL [Concomitant]
  5. SULPIRIDE [Concomitant]
  6. SCOPOLIA EXTRACT [Concomitant]
  7. DIASTASE [Concomitant]
  8. SODIUM BICARBONATE IN PLASTIC CONTAINER [Concomitant]
  9. DIGESTIVES, INCL ENZYMES [Concomitant]

REACTIONS (4)
  - DEHYDRATION [None]
  - GENERAL NUTRITION DISORDER [None]
  - HYPOXIA [None]
  - RHABDOMYOLYSIS [None]
